FAERS Safety Report 5675207-6 (Version None)
Quarter: 2008Q2

REPORT INFORMATION
  Report Type: 
  Country: None (occurrence: None)
  Receive Date: 20080303
  Receipt Date: 20071126
  Transmission Date: 20081010
  Serious: Yes (Hospitalization)
  Sender: FDA-Public Use
  Company Number: RB-8547-2007

PATIENT
  Age: 49 Year
  Sex: Male

DRUGS (2)
  1. SUBOXONE [Suspect]
     Indication: DRUG DEPENDENCE
     Dosage: 2 MG BID SUBLINGUAL, 4 MG QOD SUBLINGUAL
     Route: 060
     Dates: start: 20060901, end: 20070924
  2. SUBOXONE [Suspect]
     Indication: DRUG DEPENDENCE
     Dosage: 2 MG BID SUBLINGUAL, 4 MG QOD SUBLINGUAL
     Route: 060
     Dates: start: 20070925, end: 20071019

REACTIONS (2)
  - ASTHENIA [None]
  - MYALGIA [None]
